FAERS Safety Report 8119794-7 (Version None)
Quarter: 2012Q1

REPORT INFORMATION
  Report Type: 
  Country: None (occurrence: None)
  Receive Date: 20120207
  Receipt Date: 20120203
  Transmission Date: 20120608
  Serious: Yes (Other)
  Sender: FDA-Public Use
  Company Number: BR-BAYER-2012-011428

PATIENT
  Sex: Female

DRUGS (5)
  1. INTERFERON BETA-1B [Suspect]
     Indication: MULTIPLE SCLEROSIS
     Dosage: 8 MIU, QOD
     Route: 058
     Dates: start: 20110701, end: 20120101
  2. SYNTHROID [Concomitant]
     Indication: HYPOTHYROIDISM
     Dosage: 1 DF, QD
     Route: 048
     Dates: start: 20020101
  3. OSCAL D [Concomitant]
     Indication: BONE DECALCIFICATION
     Dosage: 1 DF, QD
     Route: 048
  4. VITAMIN D [Concomitant]
     Indication: BONE DECALCIFICATION
     Dosage: 8 GTT, UNK
     Route: 048
     Dates: start: 20110101
  5. FLUOXETINE [Concomitant]
     Indication: DEPRESSION
     Dosage: 1 DF, QD
     Route: 048
     Dates: start: 20090101

REACTIONS (5)
  - INJECTION SITE PRURITUS [None]
  - INJECTION SITE ERYTHEMA [None]
  - INJECTION SITE PAIN [None]
  - WOUND [None]
  - INJECTION SITE DISCOLOURATION [None]
